FAERS Safety Report 12797031 (Version 1)
Quarter: 2016Q3

REPORT INFORMATION
  Report Type: Spontaneous
  Country: FR (occurrence: FR)
  Receive Date: 20160929
  Receipt Date: 20160929
  Transmission Date: 20161109
  Serious: Yes (Hospitalization)
  Sender: FDA-Public Use
  Company Number: FR-ABBVIE-16P-056-1741218-00

PATIENT
  Age: 76 Year
  Sex: Female

DRUGS (7)
  1. SIMVASTATIN. [Suspect]
     Active Substance: SIMVASTATIN
     Indication: HYPERCHOLESTEROLAEMIA
     Route: 065
     Dates: end: 20160906
  2. JANUVIA [Suspect]
     Active Substance: SITAGLIPTIN PHOSPHATE
     Indication: TYPE 2 DIABETES MELLITUS
     Route: 048
  3. LASILIX [Concomitant]
     Active Substance: FUROSEMIDE
     Indication: HYPERTENSION
     Route: 048
     Dates: start: 20160903
  4. TARKA [Suspect]
     Active Substance: TRANDOLAPRIL\VERAPAMIL HYDROCHLORIDE
     Indication: HYPERTENSION
     Dosage: LP 180/2 MG
     Route: 048
  5. DOLIPRANE [Suspect]
     Active Substance: ACETAMINOPHEN
     Indication: OSTEOARTHRITIS
     Route: 048
  6. LEXOMIL [Suspect]
     Active Substance: BROMAZEPAM
     Indication: ANXIETY
     Route: 048
  7. MOVICOL [Concomitant]
     Active Substance: POLYETHYLENE GLYCOL 3350\POTASSIUM CHLORIDE\SODIUM BICARBONATE\SODIUM CHLORIDE
     Indication: PRODUCT USED FOR UNKNOWN INDICATION

REACTIONS (2)
  - Dyspnoea [Not Recovered/Not Resolved]
  - Interstitial lung disease [Not Recovered/Not Resolved]

NARRATIVE: CASE EVENT DATE: 201608
